FAERS Safety Report 8377058-0 (Version None)
Quarter: 2012Q2

REPORT INFORMATION
  Report Type: 
  Country: None (occurrence: None)
  Receive Date: 20120522
  Receipt Date: 20120514
  Transmission Date: 20120825
  Serious: Yes (Other)
  Sender: FDA-Public Use
  Company Number: JP-VERTEX PHARMACEUTICALS INC.-AE-2012-003748

PATIENT
  Age: 51 Year
  Sex: Male

DRUGS (17)
  1. DORAL [Concomitant]
     Route: 048
  2. TELAVIC (TELAPREVIR) [Suspect]
     Route: 048
     Dates: start: 20120313, end: 20120327
  3. PEG-INTRON [Concomitant]
     Route: 058
     Dates: start: 20120327, end: 20120410
  4. TELAVIC (TELAPREVIR) [Suspect]
     Route: 048
     Dates: start: 20120327, end: 20120417
  5. TELAVIC (TELAPREVIR) [Suspect]
     Route: 048
     Dates: start: 20120417, end: 20120424
  6. REBETOL [Concomitant]
     Indication: HEPATITIS C
     Route: 048
     Dates: start: 20120215, end: 20120313
  7. PEG-INTRON [Concomitant]
     Route: 058
     Dates: start: 20120313, end: 20120327
  8. REBETOL [Concomitant]
     Route: 048
     Dates: start: 20120508
  9. PEG-INTRON [Concomitant]
     Indication: HEPATITIS C
     Route: 058
     Dates: start: 20120215, end: 20120313
  10. PEG-INTRON [Concomitant]
     Route: 058
     Dates: start: 20120508
  11. DORAL [Concomitant]
     Route: 048
     Dates: end: 20120306
  12. TELAVIC (TELAPREVIR) [Suspect]
     Indication: HEPATITIS C
     Route: 048
     Dates: start: 20120215, end: 20120313
  13. ZOLPIDEM [Concomitant]
     Route: 048
     Dates: start: 20120216, end: 20120306
  14. ZOLPIDEM [Concomitant]
     Route: 048
  15. PEG-INTRON [Concomitant]
     Route: 058
     Dates: start: 20120410, end: 20120424
  16. REBETOL [Concomitant]
     Route: 048
     Dates: start: 20120313, end: 20120410
  17. REBETOL [Concomitant]
     Route: 048
     Dates: start: 20120410, end: 20120424

REACTIONS (3)
  - ANAEMIA [None]
  - NEUTROPHIL COUNT DECREASED [None]
  - WHITE BLOOD CELL COUNT DECREASED [None]
